FAERS Safety Report 8119798-4 (Version None)
Quarter: 2012Q1

REPORT INFORMATION
  Report Type: 
  Country: None (occurrence: None)
  Receive Date: 20120203
  Receipt Date: 20120118
  Transmission Date: 20120608
  Serious: Yes (Hospitalization, Other)
  Sender: FDA-Public Use
  Company Number: JPI-P-018647

PATIENT
  Age: 33 Year
  Sex: Female
  Weight: 90.7194 kg

DRUGS (13)
  1. ARMODAFINIL [Concomitant]
  2. XYREM [Suspect]
     Indication: NARCOLEPSY
     Dosage: (UNKNOWN), ORAL, 9 GM (4.5 GM, 2 IN 1 D), ORAL, 4.5 GM (4.5 GM, 1 IN 1 D), ORAL
     Route: 048
     Dates: start: 20100217
  3. DEXTROAMPHETAMINE [Concomitant]
  4. ALBUTEROL [Concomitant]
  5. NORGESTIMATE AND ETHINYL ESTRADIOL [Concomitant]
  6. FLUTICASONE PROPIONATE [Concomitant]
  7. DESLORATADINE [Concomitant]
  8. TOPIRAMATE [Suspect]
     Indication: MIGRAINE PROPHYLAXIS
     Dosage: (UNKNOWN)
     Dates: end: 20101201
  9. ACYCLOVIR [Concomitant]
  10. LIDOCAINE [Concomitant]
  11. VENLAFAXINE HYDROCHLORIDE [Concomitant]
  12. PROMETHAZINE [Concomitant]
  13. ALPRAZOLAM [Concomitant]

REACTIONS (12)
  - CONVULSION [None]
  - AGGRESSION [None]
  - SOMNOLENCE [None]
  - METABOLIC ACIDOSIS [None]
  - AMNESIA [None]
  - EMOTIONAL DISORDER [None]
  - FEELING OF DESPAIR [None]
  - TREATMENT NONCOMPLIANCE [None]
  - PREGNANCY ON ORAL CONTRACEPTIVE [None]
  - COMMUNICATION DISORDER [None]
  - MATERNAL EXPOSURE DURING PREGNANCY [None]
  - ABORTION SPONTANEOUS [None]
